FAERS Safety Report 16956606 (Version 2)
Quarter: 2022Q1

REPORT INFORMATION
  Report Type: Other
  Country: CA (occurrence: CA)
  Receive Date: 20191024
  Receipt Date: 20220121
  Transmission Date: 20220423
  Serious: Yes (Hospitalization, Other)
  Sender: FDA-Public Use
  Company Number: CA-PFIZER INC-2019454563

PATIENT
  Age: 45 Year

DRUGS (13)
  1. PHENYTOIN [Interacting]
     Active Substance: PHENYTOIN
     Indication: Seizure
     Dosage: UNK
     Route: 042
  2. TOPIRAMATE [Interacting]
     Active Substance: TOPIRAMATE
     Indication: Seizure
     Dosage: 200 MG, TWICE A DAY
     Route: 048
  3. CLONAZEPAM [Interacting]
     Active Substance: CLONAZEPAM
     Indication: Seizure
     Dosage: 1 MG, TWICE A DAY
  4. CLONAZEPAM [Interacting]
     Active Substance: CLONAZEPAM
     Dosage: 1 MG, TWICE A DAY
  5. CLONAZEPAM [Interacting]
     Active Substance: CLONAZEPAM
     Dosage: 1 MG, TWICE A DAY
     Route: 048
  6. CLONAZEPAM [Interacting]
     Active Substance: CLONAZEPAM
     Dosage: 1 MG, TWICE A DAY
     Route: 048
  7. CLONAZEPAM [Interacting]
     Active Substance: CLONAZEPAM
     Dosage: 1 MG, TWICE A DAY
  8. LEVETIRACETAM [Interacting]
     Active Substance: LEVETIRACETAM
     Indication: Seizure
     Dosage: 1500 MG, TWICE A DAY
  9. LEVETIRACETAM [Interacting]
     Active Substance: LEVETIRACETAM
     Dosage: 1500 MG, TWICE A DAY
     Route: 048
  10. VALPROIC ACID [Interacting]
     Active Substance: VALPROIC ACID
     Indication: Seizure
     Dosage: UNK
     Route: 048
  11. VALPROIC ACID [Interacting]
     Active Substance: VALPROIC ACID
     Dosage: UNK
     Route: 048
  12. VALPROIC ACID [Interacting]
     Active Substance: VALPROIC ACID
     Dosage: 750 MG, THRICE A DAY
     Route: 048
  13. VALPROIC ACID [Interacting]
     Active Substance: VALPROIC ACID
     Dosage: 750 MG, THRICE A DAY
     Route: 048

REACTIONS (5)
  - Drug interaction [Recovered/Resolved]
  - Generalised tonic-clonic seizure [Recovered/Resolved]
  - Pneumonia [Recovered/Resolved]
  - Pneumonia aspiration [Recovered/Resolved]
  - Toxic encephalopathy [Recovered/Resolved]
